FAERS Safety Report 21054188 (Version 1)
Quarter: 2022Q3

REPORT INFORMATION
  Report Type: Spontaneous
  Country: US (occurrence: US)
  Receive Date: 20220707
  Receipt Date: 20220707
  Transmission Date: 20221027
  Serious: Yes (Death, Other)
  Sender: FDA-Public Use
  Company Number: US-AMGEN-USASP2022110793

PATIENT

DRUGS (2)
  1. PROLIA [Suspect]
     Active Substance: DENOSUMAB
     Indication: Osteoporosis
     Route: 065
  2. XGEVA [Suspect]
     Active Substance: DENOSUMAB
     Indication: Hormone-refractory prostate cancer
     Route: 065

REACTIONS (6)
  - Death [Fatal]
  - Spinal cord compression [Unknown]
  - Bone operation [Unknown]
  - Pathological fracture [Unknown]
  - Bone disorder [Unknown]
  - Radiotherapy to bone [Unknown]
